FAERS Safety Report 11136538 (Version 1)
Quarter: 2015Q2

REPORT INFORMATION
  Report Type: Spontaneous
  Country: US (occurrence: US)
  Receive Date: 20150526
  Receipt Date: 20150526
  Transmission Date: 20150821
  Serious: No
  Sender: FDA-Public Use
  Company Number: US-MALLINCKRODT-T201501644

PATIENT
  Sex: Female

DRUGS (1)
  1. H.P. ACTHAR [Suspect]
     Active Substance: CORTICOTROPIN
     Indication: NEPHROTIC SYNDROME
     Dosage: TWICE WEEKLY
     Route: 065

REACTIONS (4)
  - Faecal incontinence [Not Recovered/Not Resolved]
  - Muscle spasms [Recovering/Resolving]
  - Therapeutic response unexpected [Not Recovered/Not Resolved]
  - Increased appetite [Not Recovered/Not Resolved]
